FAERS Safety Report 13164096 (Version 5)
Quarter: 2017Q4

REPORT INFORMATION
  Report Type: Report from Study
  Country: US (occurrence: US)
  Receive Date: 20170130
  Receipt Date: 20171004
  Transmission Date: 20180320
  Serious: Yes (Hospitalization)
  Sender: FDA-Public Use
  Company Number: US-JNJFOC-20170125208

PATIENT
  Age: 69 Year
  Sex: Male

DRUGS (2)
  1. SIMPONI ARIA [Suspect]
     Active Substance: GOLIMUMAB
     Indication: RHEUMATOID ARTHRITIS
     Route: 042
  2. PLAQUENIL [Concomitant]
     Active Substance: HYDROXYCHLOROQUINE SULFATE
     Indication: RHEUMATOID ARTHRITIS
     Route: 065
     Dates: end: 2015

REACTIONS (4)
  - Hepatic function abnormal [Unknown]
  - Transitional cell carcinoma [Unknown]
  - Cystitis [Unknown]
  - Peritonitis bacterial [Not Recovered/Not Resolved]

NARRATIVE: CASE EVENT DATE: 20160805
